FAERS Safety Report 17115466 (Version 3)
Quarter: 2020Q1

REPORT INFORMATION
  Report Type: Spontaneous
  Country: DE (occurrence: DE)
  Receive Date: 20191205
  Receipt Date: 20200207
  Transmission Date: 20200409
  Serious: Yes (Life-Threatening, Hospitalization, Other)
  Sender: FDA-Public Use
  Company Number: NVSC2019DE043683

PATIENT
  Age: 16 Year
  Sex: Female

DRUGS (6)
  1. FRISIUM [Concomitant]
     Active Substance: CLOBAZAM
     Indication: EPILEPSY
     Dosage: 15 MG, QD
     Route: 048
     Dates: start: 20180611
  2. VIMPAT [Concomitant]
     Active Substance: LACOSAMIDE
     Indication: EPILEPSY
     Dosage: 250 MG, QD
     Route: 048
     Dates: start: 20120730
  3. VOTUBIA [Suspect]
     Active Substance: EVEROLIMUS
     Dosage: 7.5 MG, QD
     Route: 048
     Dates: start: 20160227, end: 20191101
  4. INOVELON [Concomitant]
     Active Substance: RUFINAMIDE
     Indication: EPILEPSY
     Dosage: 2400 MG, QD
     Route: 048
     Dates: start: 20081030
  5. CANNABIDIOL [Concomitant]
     Active Substance: CANNABIDIOL
     Indication: PRODUCT USED FOR UNKNOWN INDICATION
     Dosage: 30 UNK, BID
     Route: 050
     Dates: start: 20180903, end: 20191107
  6. VOTUBIA [Suspect]
     Active Substance: EVEROLIMUS
     Indication: EPILEPSY
     Dosage: UNK
     Route: 065
     Dates: start: 2016

REACTIONS (9)
  - Autoimmune disorder [Recovered/Resolved]
  - Pharyngitis [Recovered/Resolved]
  - Hypoalbuminaemia [Recovered/Resolved]
  - Hypoxia [Recovered/Resolved]
  - Pyrexia [Recovered/Resolved]
  - Pancytopenia [Recovered/Resolved]
  - Acute respiratory failure [Recovered/Resolved]
  - Autoimmune hepatitis [Recovered/Resolved]
  - Pleural effusion [Recovered/Resolved]

NARRATIVE: CASE EVENT DATE: 20191024
